FAERS Safety Report 12954838 (Version 3)
Quarter: 2017Q3

REPORT INFORMATION
  Report Type: Report from Study
  Country: JP (occurrence: JP)
  Receive Date: 20161118
  Receipt Date: 20170811
  Transmission Date: 20171127
  Serious: Yes (Other)
  Sender: FDA-Public Use
  Company Number: JP-ASTELLAS-2016JP019517

PATIENT
  Age: 9 Decade
  Sex: Female
  Weight: 51 kg

DRUGS (8)
  1. TACROLIMUS. [Suspect]
     Active Substance: TACROLIMUS
     Indication: ORAL LICHEN PLANUS
     Dosage: UNK UNK, TWICE DAILY
     Route: 061
     Dates: start: 20131113, end: 201504
  2. TACROLIMUS. [Suspect]
     Active Substance: TACROLIMUS
     Indication: ORAL LICHEN PLANUS
     Dosage: UNK UNK, TWICE DAILY
     Route: 061
     Dates: start: 20130403, end: 20131113
  3. HALIZON [Concomitant]
     Active Substance: AMPHOTERICIN B
     Dosage: UNK UNK, 4 TIMES DAILY
     Route: 048
     Dates: start: 20140409, end: 20140709
  4. FUNGIZONE [Concomitant]
     Active Substance: AMPHOTERICIN B
     Indication: CANDIDA INFECTION
     Dosage: UNK UNK, 4 TIMES DAILY
     Route: 048
     Dates: start: 20130417, end: 20130717
  5. HALIZON [Concomitant]
     Active Substance: AMPHOTERICIN B
     Indication: ORAL CANDIDIASIS
     Dosage: UNK UNK, 4 TIMES DAILY
     Route: 048
     Dates: start: 20130918, end: 20131016
  6. HALIZON [Concomitant]
     Active Substance: AMPHOTERICIN B
     Dosage: UNK UNK, 4 TIMES DAILY
     Route: 048
     Dates: start: 20140806, end: 20140820
  7. HALIZON [Concomitant]
     Active Substance: AMPHOTERICIN B
     Dosage: UNK UNK, 4 TIMES DAILY
     Route: 048
     Dates: start: 20131113, end: 20140115
  8. HALIZON [Concomitant]
     Active Substance: AMPHOTERICIN B
     Dosage: UNK UNK, 4 TIMES DAILY
     Route: 048
     Dates: start: 20140903, end: 20150415

REACTIONS (2)
  - Squamous cell carcinoma of the tongue [Recovering/Resolving]
  - Off label use [Unknown]

NARRATIVE: CASE EVENT DATE: 20130403
